FAERS Safety Report 5529519-7 (Version None)
Quarter: 2007Q4

REPORT INFORMATION
  Report Type: 
  Country: None (occurrence: None)
  Receive Date: 20071129
  Receipt Date: 20070727
  Transmission Date: 20080405
  Serious: Yes (Death, Other)
  Sender: FDA-Public Use
  Company Number: CO-SANOFI-SYNTHELABO-A01200708458

PATIENT
  Sex: Female

DRUGS (1)
  1. COROTROPE [Suspect]
     Indication: CARDIAC DISORDER
     Dosage: 50 MCG/KG/MIN UNK
     Route: 042
     Dates: start: 20070701, end: 20070701

REACTIONS (4)
  - CONDITION AGGRAVATED [None]
  - PULMONARY ARTERIAL PRESSURE INCREASED [None]
  - TACHYCARDIA [None]
  - VOMITING [None]
